FAERS Safety Report 12496247 (Version 1)
Quarter: 2016Q2

REPORT INFORMATION
  Report Type: Spontaneous
  Country: US (occurrence: US)
  Receive Date: 20160624
  Receipt Date: 20160624
  Transmission Date: 20160815
  Serious: No
  Sender: FDA-Public Use
  Company Number: US-JNJFOC-20160521791

PATIENT
  Age: 77 Year
  Sex: Female
  Weight: 99.79 kg

DRUGS (2)
  1. IMODIUM A-D [Suspect]
     Active Substance: LOPERAMIDE HYDROCHLORIDE
     Indication: MUSCLE SPASMS
     Dosage: DOSE: 2 TEASPOONS, THIS MORNING
     Route: 048
     Dates: start: 20160523, end: 20160523
  2. IMODIUM A-D [Suspect]
     Active Substance: LOPERAMIDE HYDROCHLORIDE
     Indication: DIARRHOEA
     Dosage: DOSE: 2 TEASPOONS, THIS MORNING
     Route: 048
     Dates: start: 20160523, end: 20160523

REACTIONS (2)
  - Off label use [Unknown]
  - Drug ineffective [Unknown]

NARRATIVE: CASE EVENT DATE: 20160523
